FAERS Safety Report 11136125 (Version 1)
Quarter: 2015Q2

REPORT INFORMATION
  Report Type: Report from Study
  Country: US (occurrence: US)
  Receive Date: 20150525
  Receipt Date: 20150525
  Transmission Date: 20150821
  Serious: Yes (Hospitalization, Other)
  Sender: FDA-Public Use
  Company Number: PHHO2015US009079

PATIENT
  Age: 66 Year
  Sex: Male
  Weight: 91 kg

DRUGS (3)
  1. RADIATION THERAPY [Concomitant]
     Active Substance: RADIATION THERAPY
     Indication: GLIOBLASTOMA MULTIFORME
     Dosage: UNK
     Route: 065
     Dates: start: 20130912, end: 20131023
  2. AFINITOR [Suspect]
     Active Substance: EVEROLIMUS
     Indication: GLIOBLASTOMA MULTIFORME
     Dosage: 10 MG, UNK
     Route: 048
     Dates: start: 20130912
  3. COMPARATOR TEMOZOLOMIDE [Suspect]
     Active Substance: TEMOZOLOMIDE
     Indication: GLIOBLASTOMA MULTIFORME
     Dosage: 75 MG/M2, UNK
     Route: 048
     Dates: start: 20130912

REACTIONS (3)
  - Hemiparesis [Recovered/Resolved]
  - Platelet count decreased [Recovered/Resolved]
  - Seizure [Recovered/Resolved]

NARRATIVE: CASE EVENT DATE: 20131026
